FAERS Safety Report 4379050-X (Version None)
Quarter: 2004Q2

REPORT INFORMATION
  Report Type: 
  Country: None (occurrence: None)
  Receive Date: 20040601
  Receipt Date: 20040401
  Transmission Date: 20050107
  Serious: No
  Sender: FDA-Public Use
  Company Number: WAES 0404USA00149

PATIENT
  Sex: Male

DRUGS (1)
  1. ZETIA [Suspect]
     Dosage: QOD/PO
     Route: 048

REACTIONS (4)
  - GINGIVAL PAIN [None]
  - MEDICATION ERROR [None]
  - ORAL PAIN [None]
  - UNEXPECTED THERAPEUTIC DRUG EFFECT [None]
